FAERS Safety Report 9553701 (Version 1)
Quarter: 2013Q2

REPORT INFORMATION
  Report Type: Spontaneous
  Country: US (occurrence: None)
  Receive Date: 20130507
  Receipt Date: 20130507
  Transmission Date: 20140414
  Serious: Yes (Other)
  Sender: FDA-Public Use
  Company Number: PHEH2012US003606

PATIENT
  Age: 50 Year
  Sex: Female

DRUGS (1)
  1. TASIGNA [Suspect]
     Indication: LEUKOCYTOSIS
     Dates: start: 20101118

REACTIONS (4)
  - Deafness [None]
  - Alopecia [None]
  - Pruritus [None]
  - Bone pain [None]
